FAERS Safety Report 7090333-5 (Version None)
Quarter: 2010Q4

REPORT INFORMATION
  Report Type: 
  Country: None (occurrence: None)
  Receive Date: 20101109
  Receipt Date: 20101029
  Transmission Date: 20110411
  Serious: Yes (Other)
  Sender: FDA-Public Use
  Company Number: US-JNJFOC-20100802432

PATIENT
  Sex: Male
  Weight: 79.38 kg

DRUGS (4)
  1. LEVAQUIN [Suspect]
     Indication: PROSTATE INFECTION
     Route: 048
  2. LEVAQUIN [Suspect]
     Route: 048
  3. LEVOXYL [Concomitant]
     Indication: THYROID DISORDER
     Route: 065
  4. SYNTHROID [Concomitant]
     Indication: HYPOTHYROIDISM
     Route: 065

REACTIONS (3)
  - DRUG INEFFECTIVE [None]
  - PROSTATE INFECTION [None]
  - PROSTATIC SPECIFIC ANTIGEN INCREASED [None]
